FAERS Safety Report 5527644-8 (Version None)
Quarter: 2007Q4

REPORT INFORMATION
  Report Type: 
  Country: None (occurrence: None)
  Receive Date: 20071126
  Receipt Date: 20071126
  Transmission Date: 20080405
  Serious: Yes (Other)
  Sender: FDA-Public Use
  Company Number: None

PATIENT
  Age: 45 Year
  Sex: Male
  Weight: 88.4514 kg

DRUGS (1)
  1. HUMULIN N [Suspect]
     Indication: DIABETES MELLITUS
     Dosage: 42 UNITS DAILY SQ
     Route: 058
     Dates: start: 20071123, end: 20071125

REACTIONS (1)
  - BLOOD GLUCOSE INCREASED [None]
